FAERS Safety Report 21613488 (Version 1)
Quarter: 2022Q4

REPORT INFORMATION
  Report Type: Report from Study
  Country: CA (occurrence: CA)
  Receive Date: 20221118
  Receipt Date: 20221118
  Transmission Date: 20230113
  Serious: Yes (Other)
  Sender: FDA-Public Use
  Company Number: CA-BEH-2022152118

PATIENT
  Age: 49 Year
  Sex: Female

DRUGS (11)
  1. BERINERT [Suspect]
     Active Substance: HUMAN C1-ESTERASE INHIBITOR
     Indication: Hereditary angioedema
     Dosage: UNK
     Route: 042
  2. BERINERT [Suspect]
     Active Substance: HUMAN C1-ESTERASE INHIBITOR
     Indication: Hereditary angioedema
     Dosage: UNK
     Route: 042
  3. BERINERT [Suspect]
     Active Substance: HUMAN C1-ESTERASE INHIBITOR
     Indication: Hereditary angioedema
     Dosage: UNK
     Route: 065
  4. BERINERT [Suspect]
     Active Substance: HUMAN C1-ESTERASE INHIBITOR
     Indication: Hereditary angioedema
     Dosage: UNK
     Route: 065
  5. LANADELUMAB [Concomitant]
     Active Substance: LANADELUMAB
  6. FIRAZYR [Concomitant]
     Active Substance: ICATIBANT ACETATE
  7. OTEZLA [Concomitant]
     Active Substance: APREMILAST
  8. SILDENAFIL [Concomitant]
     Active Substance: SILDENAFIL
  9. ZOFRAN [Concomitant]
     Active Substance: ONDANSETRON HYDROCHLORIDE
  10. TYLENOL [Concomitant]
     Active Substance: ACETAMINOPHEN
  11. ATIVAN [Concomitant]
     Active Substance: LORAZEPAM

REACTIONS (17)
  - Osteoporosis [Unknown]
  - Psoriasis [Unknown]
  - Inflammatory bowel disease [Unknown]
  - Mixed connective tissue disease [Unknown]
  - Raynaud^s phenomenon [Unknown]
  - Depression [Unknown]
  - Seasonal allergy [Unknown]
  - Seasonal allergy [Unknown]
  - Seasonal allergy [Unknown]
  - Rhinitis allergic [Unknown]
  - Mite allergy [Unknown]
  - Allergy to animal [Unknown]
  - Allergy to arthropod bite [Unknown]
  - Allergy to sting [Unknown]
  - Rubber sensitivity [Unknown]
  - Drug hypersensitivity [Unknown]
  - Drug hypersensitivity [Unknown]

NARRATIVE: CASE EVENT DATE: 20180101
